FAERS Safety Report 18564389 (Version 1)
Quarter: 2020Q4

REPORT INFORMATION
  Report Type: Spontaneous
  Country: US (occurrence: US)
  Receive Date: 20201130
  Receipt Date: 20201130
  Transmission Date: 20210114
  Serious: Yes (Other)
  Sender: FDA-Public Use
  Company Number: None

PATIENT
  Age: 72 Year
  Sex: Female
  Weight: 105.69 kg

DRUGS (11)
  1. SUCRA LFATE [Concomitant]
  2. IMODIUM [Concomitant]
     Active Substance: LOPERAMIDE HYDROCHLORIDE
  3. TUMS [Concomitant]
     Active Substance: CALCIUM CARBONATE
  4. WARFAN^N [Concomitant]
  5. CAPECITABINE. [Suspect]
     Active Substance: CAPECITABINE
  6. TUKYSA [Concomitant]
     Active Substance: TUCATINIB
  7. ROSUVASTATIN. [Concomitant]
     Active Substance: ROSUVASTATIN
  8. FAMOTIDINE. [Concomitant]
     Active Substance: FAMOTIDINE
  9. METOPROL OL [Concomitant]
  10. VITAMIN B [Concomitant]
     Active Substance: VITAMIN B
  11. ONDANSETRON [Concomitant]
     Active Substance: ONDANSETRON

REACTIONS (1)
  - Pain in extremity [None]

NARRATIVE: CASE EVENT DATE: 20201130
